FAERS Safety Report 9820603 (Version 1)
Quarter: 2013Q4

REPORT INFORMATION
  Report Type: Spontaneous
  Country: US (occurrence: None)
  Receive Date: 20131028
  Receipt Date: 20131028
  Transmission Date: 20140711
  Serious: Yes (Other)
  Sender: FDA-Public Use
  Company Number: 2013US001651

PATIENT
  Age: 50 Year
  Sex: Female
  Weight: 120 kg

DRUGS (16)
  1. ICLUSIG [Suspect]
     Indication: CHRONIC MYELOID LEUKAEMIA
     Route: 048
     Dates: start: 20130227
  2. WARFARIN [Concomitant]
  3. LOSARTAN [Concomitant]
  4. VESICARE (SOLIFENACIN SUCCINATE) [Concomitant]
  5. ZYRTEC (CETIRIZINE HYDROCHLORIDE) [Concomitant]
  6. LYRICA (PREGABALIN) [Concomitant]
  7. SUCRALFATE (SUCRALFATE) [Concomitant]
  8. LANTUS (INSULIN GLARGINE) [Concomitant]
  9. MIRALAX (MACROGOL) [Concomitant]
  10. METHADONE (METHADONE) [Concomitant]
  11. TEMAZEPAM (TEMAZEPAM) [Concomitant]
  12. LASIX (FUROSEMIDE) [Concomitant]
  13. ATORVASTATIN [Concomitant]
  14. FLUTICASONE [Concomitant]
  15. HUMALOG (INSULIN LISPRO) [Concomitant]
  16. FAMOTIDINE [Concomitant]

REACTIONS (7)
  - Skin exfoliation [None]
  - Nocturnal dyspnoea [None]
  - Productive cough [None]
  - Erythema [None]
  - Dry skin [None]
  - Oedema peripheral [None]
  - Fatigue [None]
